FAERS Safety Report 21039059 (Version 2)
Quarter: 2022Q3

REPORT INFORMATION
  Report Type: Spontaneous
  Country: JP (occurrence: JP)
  Receive Date: 20220704
  Receipt Date: 20220711
  Transmission Date: 20221026
  Serious: Yes (Other)
  Sender: FDA-Public Use
  Company Number: JP-UCBJ-CD202206363UCBPHAPROD

PATIENT
  Age: 44 Year
  Sex: Male

DRUGS (3)
  1. LEVETIRACETAM [Suspect]
     Active Substance: LEVETIRACETAM
     Indication: Epilepsy
     Dosage: 500 MILLIGRAM, 2X/DAY (BID)
     Route: 048
  2. LEVOTHYROXINE [Concomitant]
     Active Substance: LEVOTHYROXINE
     Indication: Basedow^s disease
     Dosage: 125 MILLIGRAM, ONCE DAILY (QD)
     Route: 048
  3. EDOXABAN TOSYLATE [Concomitant]
     Active Substance: EDOXABAN TOSYLATE
     Indication: Cerebral venous sinus thrombosis
     Dosage: 60 MILLIGRAM, ONCE DAILY (QD)
     Route: 048

REACTIONS (2)
  - Epilepsy [Unknown]
  - Aphasia [Unknown]

NARRATIVE: CASE EVENT DATE: 20220614
